FAERS Safety Report 13657247 (Version 1)
Quarter: 2017Q2

REPORT INFORMATION
  Report Type: Other
  Country: US (occurrence: US)
  Receive Date: 20170615
  Receipt Date: 20170615
  Transmission Date: 20170830
  Serious: Yes (Hospitalization)
  Sender: FDA-Public Use
  Company Number: US-ARALEZ PHARMACEUTICALS R+D INC.-ARA-TP-US-2017-642

PATIENT
  Age: 71 Year
  Sex: Female

DRUGS (2)
  1. TOPROL XL [Suspect]
     Active Substance: METOPROLOL SUCCINATE
     Indication: HYPERTENSION
     Dates: start: 20140603
  2. ARIMIDEX [Suspect]
     Active Substance: ANASTROZOLE
     Indication: PRODUCT USED FOR UNKNOWN INDICATION
     Dates: start: 20140603

REACTIONS (6)
  - Lower limb fracture [Unknown]
  - Myalgia [Unknown]
  - Balance disorder [Unknown]
  - Fall [Unknown]
  - Incorrect dose administered [Unknown]
  - Alopecia [Unknown]

NARRATIVE: CASE EVENT DATE: 20140603
